FAERS Safety Report 6808984-9 (Version None)
Quarter: 2010Q2

REPORT INFORMATION
  Report Type: 
  Country: None (occurrence: None)
  Receive Date: 20100630
  Receipt Date: 20091120
  Transmission Date: 20101027
  Serious: No
  Sender: FDA-Public Use
  Company Number: US-PFIZER INC-2009279466

PATIENT
  Sex: Female
  Weight: 95.254 kg

DRUGS (1)
  1. BEXTRA [Suspect]
     Indication: ARTHRITIS

REACTIONS (2)
  - CHEST PAIN [None]
  - OROPHARYNGEAL PAIN [None]
